FAERS Safety Report 8825820 (Version 2)
Quarter: 2012Q4

REPORT INFORMATION
  Report Type: 
  Country: US (occurrence: US)
  Receive Date: 20121004
  Receipt Date: 20121130
  Transmission Date: 20130627
  Serious: No
  Sender: FDA-Public Use
  Company Number: US-ASTRAZENECA-2012SE75656

PATIENT
  Age: 47 Year
  Sex: Female
  Weight: 74.4 kg

DRUGS (6)
  1. SEROQUEL XR [Suspect]
     Indication: BIPOLAR DISORDER
     Route: 048
     Dates: start: 2009, end: 201208
  2. SEROQUEL XR [Suspect]
     Indication: BIPOLAR DISORDER
     Route: 048
     Dates: start: 201208, end: 20120930
  3. SEROQUEL XR [Suspect]
     Indication: BIPOLAR DISORDER
     Route: 048
     Dates: start: 20090804
  4. NEURONTIN [Concomitant]
     Indication: PAIN MANAGEMENT
  5. NEURONTIN [Concomitant]
     Indication: BIPOLAR DISORDER
  6. TRAZADONE [Concomitant]
     Indication: SLEEP DISORDER

REACTIONS (7)
  - Tachyphrenia [Recovered/Resolved]
  - Confusional state [Recovered/Resolved]
  - Insomnia [Recovered/Resolved]
  - Disease recurrence [Unknown]
  - Hot flush [Recovered/Resolved]
  - Tremor [Recovered/Resolved]
  - Drug dose omission [Unknown]
